FAERS Safety Report 7041543-4 (Version None)
Quarter: 2010Q4

REPORT INFORMATION
  Report Type: 
  Country: None (occurrence: None)
  Receive Date: 20101013
  Receipt Date: 20100706
  Transmission Date: 20110411
  Serious: No
  Sender: FDA-Public Use
  Company Number: US-ASTRAZENECA-2010SE31499

PATIENT
  Age: 586 Month
  Sex: Female
  Weight: 47.6 kg

DRUGS (4)
  1. SYMBICORT [Suspect]
     Indication: ASTHMA
     Route: 055
     Dates: start: 20100401
  2. AZMACORT [Suspect]
     Indication: ASTHMA
     Route: 055
     Dates: end: 20100401
  3. DIAZEPAM [Concomitant]
  4. ESCITALOPRAM OXALATE [Concomitant]

REACTIONS (3)
  - BURNING SENSATION [None]
  - PAINFUL RESPIRATION [None]
  - PANIC ATTACK [None]
